FAERS Safety Report 9215224 (Version 3)
Quarter: 2013Q3

REPORT INFORMATION
  Report Type: Report from Study
  Country: JP (occurrence: JP)
  Receive Date: 20130405
  Receipt Date: 20130912
  Transmission Date: 20140515
  Serious: Yes (Other)
  Sender: FDA-Public Use
  Company Number: JP-OTSUKA-JP-2013-10788

PATIENT
  Age: 88 Year
  Sex: Female
  Weight: 54.6 kg

DRUGS (19)
  1. SAMSCA [Suspect]
     Indication: FLUID RETENTION
     Dosage: 15 MG MILLIGRAM(S), QAM
     Route: 048
     Dates: start: 20130203
  2. BAYASPIRIN [Concomitant]
     Dosage: 100 MG MILLIGRAM(S), DAILY DOSE
     Route: 048
  3. PLAVIX [Concomitant]
     Dosage: 75 MG MILLIGRAM(S), DAILY DOSE
     Route: 048
  4. NEXIUM [Concomitant]
     Dosage: 20 MG MILLIGRAM(S), DAILY DOSE
     Route: 048
  5. IRBETAN [Concomitant]
     Indication: CARDIAC FAILURE
     Dosage: 100 MG MILLIGRAM(S), DAILY DOSE
     Route: 048
  6. DIART [Concomitant]
     Indication: CARDIAC FAILURE
     Dosage: 60 MG MILLIGRAM(S), DAILY DOSE
     Route: 048
  7. EPADEL [Concomitant]
     Dosage: 1800 MG MILLIGRAM(S), DAILY DOSE
     Route: 048
  8. PIMOBENDAN [Concomitant]
     Indication: CARDIAC FAILURE
     Dosage: 2.5 MG MILLIGRAM(S), DAILY DOSE
     Route: 048
  9. LIPITOR [Concomitant]
     Dosage: 10 MG MILLIGRAM(S), DAILY DOSE
     Route: 048
  10. ALDACTONE A [Concomitant]
     Indication: CARDIAC FAILURE
     Dosage: 25 MG MILLIGRAM(S), DAILY DOSE
     Route: 048
  11. FEBURIC [Concomitant]
     Dosage: 20 MG MILLIGRAM(S), DAILY DOSE
     Route: 048
  12. BIOFERMIN [Concomitant]
     Dosage: 3 G GRAM(S), DAILY DOSE
     Route: 048
  13. VASOLAN [Concomitant]
     Dosage: 120 MG MILLIGRAM(S), DAILY DOSE
     Route: 048
     Dates: start: 20130207
  14. ARGAMATE [Concomitant]
     Indication: PROPHYLAXIS
     Dosage: 75 G GRAM(S), DAILY DOSE
     Route: 048
     Dates: start: 20130207
  15. HANP [Concomitant]
     Indication: CARDIAC FAILURE
     Dosage: 1 MG MILLIGRAM(S), DAILY DOSE
     Route: 042
     Dates: start: 20130208, end: 20130212
  16. LASIX [Concomitant]
     Indication: CARDIAC FAILURE
     Dosage: 120 MG MILLIGRAM(S), DAILY DOSE
     Route: 042
     Dates: start: 20130208, end: 20130226
  17. DOBUPUM [Concomitant]
     Indication: CARDIAC FAILURE
     Dosage: 72 MG MILLIGRAM(S), DAILY DOSE
     Route: 042
     Dates: start: 20130210, end: 20130225
  18. MAINTATE [Concomitant]
     Indication: CARDIAC FAILURE
     Dosage: 1.3 MG MILLIGRAM(S), DAILY DOSE
     Route: 048
     Dates: start: 20130213
  19. HOKUNALIN [Concomitant]
     Dosage: 2 MG MILLIGRAM(S), DAILY DOSE
     Route: 061
     Dates: start: 20130213

REACTIONS (2)
  - Blood urea increased [Unknown]
  - Thirst [Recovering/Resolving]
